FAERS Safety Report 8052038-3 (Version None)
Quarter: 2012Q1

REPORT INFORMATION
  Report Type: 
  Country: None (occurrence: None)
  Receive Date: 20120118
  Receipt Date: 20120109
  Transmission Date: 20120608
  Serious: Yes (Hospitalization)
  Sender: FDA-Public Use
  Company Number: US-BAYER-2010-001714

PATIENT
  Age: 27 Year
  Sex: Female
  Weight: 126.98 kg

DRUGS (1)
  1. YAZ [Suspect]
     Dosage: UNK
     Dates: start: 20071201, end: 20081001

REACTIONS (1)
  - CEREBROVASCULAR ACCIDENT [None]
